FAERS Safety Report 5497886-9 (Version None)
Quarter: 2007Q4

REPORT INFORMATION
  Report Type: 
  Country: None (occurrence: None)
  Receive Date: 20071025
  Receipt Date: 20071010
  Transmission Date: 20080405
  Serious: Yes (Death)
  Sender: FDA-Public Use
  Company Number: CA-SHR-02/00027-CDS

PATIENT
  Age: 42 Year
  Sex: Female

DRUGS (1)
  1. BETASERON [Suspect]
     Dosage: 8 MIU QOD
     Route: 058
     Dates: start: 20011217, end: 20011230

REACTIONS (1)
  - PULMONARY EMBOLISM [None]
